APPROVED DRUG PRODUCT: CALCIUM GLUCONATE
Active Ingredient: CALCIUM GLUCONATE
Strength: 5GM/50ML (100MG/ML)
Dosage Form/Route: SOLUTION;INTRAVENOUS
Application: A213071 | Product #002 | TE Code: AP
Applicant: NIVAGEN PHARMACEUTICALS INC
Approved: Oct 19, 2023 | RLD: No | RS: No | Type: RX